FAERS Safety Report 7995773-5 (Version None)
Quarter: 2011Q4

REPORT INFORMATION
  Report Type: 
  Country: None (occurrence: None)
  Receive Date: 20111220
  Receipt Date: 20111215
  Transmission Date: 20120403
  Serious: Yes (Hospitalization)
  Sender: FDA-Public Use
  Company Number: JP-B.I. PHARMACEUTICALS,INC./RIDGEFIELD-2011-BP-26369NB

PATIENT
  Age: 76 Year
  Sex: Male
  Weight: 68.6 kg

DRUGS (6)
  1. SUNRYTHM [Concomitant]
     Route: 048
     Dates: start: 20101122, end: 20110926
  2. TRICHLORMETHIAZIDE [Concomitant]
     Dosage: 1 MG
     Route: 048
     Dates: start: 20110325, end: 20110620
  3. TORSEMIDE [Concomitant]
     Dosage: 4 MG
     Route: 048
     Dates: start: 20101122
  4. PRADAXA [Suspect]
     Indication: ATRIAL FIBRILLATION
     Dosage: 220 MG
     Route: 048
     Dates: start: 20110323
  5. VERAPAMIL HCL [Concomitant]
     Dosage: 80 MG
     Route: 048
     Dates: start: 20101117
  6. CANDESARTAN CILEXETIL [Concomitant]
     Dosage: 4 MG
     Route: 048
     Dates: start: 20110315, end: 20110530

REACTIONS (1)
  - CEREBRAL INFARCTION [None]
